FAERS Safety Report 24537280 (Version 3)
Quarter: 2024Q4

REPORT INFORMATION
  Report Type: Report from Study
  Country: CA (occurrence: CA)
  Receive Date: 20241022
  Receipt Date: 20241119
  Transmission Date: 20250114
  Serious: Yes (Other)
  Sender: BAUSCH AND LOMB
  Company Number: CA-BAUSCH-BL-2024-010828

PATIENT
  Age: 29 Year
  Sex: Female

DRUGS (3)
  1. SILIQ [Suspect]
     Active Substance: BRODALUMAB
     Indication: Psoriasis
     Dosage: 210 MG / 1.5 ML, WEEKLY (WEEK 0-2)
     Route: 058
     Dates: start: 20240711, end: 20240725
  2. SILIQ [Suspect]
     Active Substance: BRODALUMAB
     Dosage: 210 MG / 1.5 ML, Q2 WEEKS
     Route: 058
     Dates: start: 202408, end: 2024
  3. AMOXICILLIN [Suspect]
     Active Substance: AMOXICILLIN
     Indication: Product used for unknown indication
     Route: 065
     Dates: start: 20241015

REACTIONS (17)
  - Tooth disorder [Unknown]
  - Pneumonia [Not Recovered/Not Resolved]
  - Dizziness [Unknown]
  - Sputum discoloured [Not Recovered/Not Resolved]
  - Urine odour abnormal [Unknown]
  - Dyspnoea [Unknown]
  - Psoriasis [Not Recovered/Not Resolved]
  - Disease recurrence [Not Recovered/Not Resolved]
  - Adverse drug reaction [Unknown]
  - Bronchitis [Not Recovered/Not Resolved]
  - Injection site pain [Recovered/Resolved]
  - Urinary tract infection [Not Recovered/Not Resolved]
  - Vaginal infection [Not Recovered/Not Resolved]
  - Post procedural infection [Unknown]
  - Diarrhoea [Unknown]
  - Fungal infection [Unknown]
  - Product use issue [Unknown]

NARRATIVE: CASE EVENT DATE: 20240101
